FAERS Safety Report 9855060 (Version 1)
Quarter: 2014Q1

REPORT INFORMATION
  Report Type: Spontaneous
  Country: US (occurrence: None)
  Receive Date: 20140123
  Receipt Date: 20140123
  Transmission Date: 20141002
  Serious: Yes (Other)
  Sender: FDA-Public Use
  Company Number: DL2013-0974

PATIENT
  Age: 29 Year
  Sex: Female

DRUGS (3)
  1. MIFEPRISTONE [Suspect]
     Indication: ABORTION INDUCED
     Route: 048
     Dates: start: 20131115
  2. MISOPROSTOL [Suspect]
     Route: 002
     Dates: start: 20131116
  3. AZITHROMYCIN [Concomitant]

REACTIONS (4)
  - Dizziness [None]
  - Cold sweat [None]
  - Hot flush [None]
  - Haemorrhage [None]
